FAERS Safety Report 21638891 (Version 2)
Quarter: 2022Q4

REPORT INFORMATION
  Report Type: Report from Study
  Country: US (occurrence: US)
  Receive Date: 20221124
  Receipt Date: 20221125
  Transmission Date: 20230113
  Serious: Yes (Other)
  Sender: FDA-Public Use
  Company Number: US-ABBVIE-4211360

PATIENT
  Sex: Female
  Weight: 79.378 kg

DRUGS (1)
  1. HUMIRA [Suspect]
     Active Substance: ADALIMUMAB
     Indication: Colitis ulcerative
     Dosage: FORM STRENGTH: 40 MILLIGRAM?PRODUCT START DATE TEXT: AUG 2022 OR SEP 2022
     Route: 058

REACTIONS (2)
  - Thyroid neoplasm [Not Recovered/Not Resolved]
  - Cervical cyst [Unknown]
